FAERS Safety Report 7679454-3 (Version None)
Quarter: 2011Q3

REPORT INFORMATION
  Report Type: 
  Country: None (occurrence: None)
  Receive Date: 20110812
  Receipt Date: 20110812
  Transmission Date: 20111222
  Serious: Yes (Other)
  Sender: FDA-Public Use
  Company Number: None

PATIENT
  Age: 22 Year
  Sex: Female
  Weight: 68.038 kg

DRUGS (1)
  1. FUROSEMIDE [Suspect]
     Indication: SWELLING
     Dosage: 20MG
     Route: 042
     Dates: start: 20110718, end: 20110721

REACTIONS (2)
  - DEAFNESS [None]
  - TINNITUS [None]
